FAERS Safety Report 13842905 (Version 1)
Quarter: 2017Q3

REPORT INFORMATION
  Report Type: Spontaneous
  Country: CH (occurrence: CH)
  Receive Date: 20170808
  Receipt Date: 20170808
  Transmission Date: 20171127
  Serious: Yes (Hospitalization)
  Sender: FDA-Public Use
  Company Number: CH-BAYER-2017-144674

PATIENT
  Age: 93 Year
  Sex: Male

DRUGS (26)
  1. CORDARONE [Suspect]
     Active Substance: AMIODARONE HYDROCHLORIDE
     Dosage: 200 MG, QD
     Route: 048
     Dates: start: 20170228
  2. AUGMENTIN [Suspect]
     Active Substance: AMOXICILLIN\CLAVULANATE POTASSIUM
     Dosage: UNK
  3. CLEXANE [Interacting]
     Active Substance: ENOXAPARIN SODIUM
     Dosage: UNK
  4. CALCIPARINE [Interacting]
     Active Substance: HEPARIN CALCIUM
     Dosage: 5000 IU, UNK
     Route: 058
     Dates: start: 20170422, end: 20170422
  5. TOREM [Concomitant]
     Active Substance: TORSEMIDE
     Dates: start: 201612
  6. VI-DE 3 [Concomitant]
     Active Substance: CHOLECALCIFEROL
     Dates: start: 20170113
  7. LAMICTAL [Suspect]
     Active Substance: LAMOTRIGINE
     Dosage: UNK
  8. PLAVIX [Interacting]
     Active Substance: CLOPIDOGREL BISULFATE
     Dosage: UNK
  9. GLUCOPHAGE [Suspect]
     Active Substance: METFORMIN HYDROCHLORIDE
     Dosage: UNK
  10. LAMICTAL [Suspect]
     Active Substance: LAMOTRIGINE
     Dosage: 25 MG, QD
     Route: 048
     Dates: start: 20170315, end: 20170410
  11. CLEXANE [Interacting]
     Active Substance: ENOXAPARIN SODIUM
     Dosage: 40 MG, QD
     Route: 058
     Dates: start: 20170109, end: 20170206
  12. ASPIRIN CARDIO 100 MG [Suspect]
     Active Substance: ASPIRIN
     Dosage: 100 MG, QD
     Route: 048
     Dates: start: 20161223
  13. CORDARONE [Suspect]
     Active Substance: AMIODARONE HYDROCHLORIDE
     Dosage: UNK
  14. AUGMENTIN [Suspect]
     Active Substance: AMOXICILLIN\CLAVULANATE POTASSIUM
     Dosage: 625 MG, TID
     Route: 048
     Dates: start: 20170227, end: 20170303
  15. LYRICA [Suspect]
     Active Substance: PREGABALIN
     Dosage: UNK
  16. LYRICA [Suspect]
     Active Substance: PREGABALIN
     Dosage: 25 MG, QD
     Route: 048
     Dates: start: 20170410, end: 20170411
  17. SORTIS [Concomitant]
     Active Substance: ATORVASTATIN
  18. DAFALGAN [Concomitant]
     Active Substance: ACETAMINOPHEN
  19. ENALAPRIL [Concomitant]
     Active Substance: ENALAPRIL
     Dates: end: 20170310
  20. BELOC ZOK [Suspect]
     Active Substance: METOPROLOL SUCCINATE
     Dosage: 25 MG, QD
     Route: 048
     Dates: start: 20170220
  21. GLUCOPHAGE [Suspect]
     Active Substance: METFORMIN HYDROCHLORIDE
     Dosage: 500 MG, BID
     Route: 048
  22. CALCIPARINE [Interacting]
     Active Substance: HEPARIN CALCIUM
     Dosage: UNK
  23. ASPIRIN CARDIO 100 MG [Interacting]
     Active Substance: ASPIRIN
     Dosage: UNK
  24. PLAVIX [Interacting]
     Active Substance: CLOPIDOGREL BISULFATE
     Dosage: 75 MG, QD
     Route: 048
     Dates: start: 20161223
  25. BELOC ZOK [Suspect]
     Active Substance: METOPROLOL SUCCINATE
     Dosage: 25 MG, QD
     Route: 048
     Dates: start: 20161230, end: 20170104
  26. ISOKET [Concomitant]
     Active Substance: ISOSORBIDE DINITRATE
     Dates: start: 20170203

REACTIONS (11)
  - Craniocerebral injury [Unknown]
  - Haematuria [Recovered/Resolved]
  - Rash [Recovered/Resolved]
  - Craniocerebral injury [None]
  - Subarachnoid haemorrhage [Unknown]
  - Hypoglycaemia [Recovered/Resolved]
  - Hypotension [Recovered/Resolved]
  - Bradycardia [Recovered/Resolved]
  - Traumatic haematoma [Unknown]
  - Fall [Recovered/Resolved]
  - Fall [Recovered/Resolved]

NARRATIVE: CASE EVENT DATE: 20170104
